FAERS Safety Report 8557543-9 (Version None)
Quarter: 2012Q3

REPORT INFORMATION
  Report Type: 
  Country: None (occurrence: None)
  Receive Date: 20120801
  Receipt Date: 20120727
  Transmission Date: 20120928
  Serious: Yes (Hospitalization, Other)
  Sender: FDA-Public Use
  Company Number: US-PFIZER INC-2012105170

PATIENT
  Sex: Male

DRUGS (5)
  1. CHANTIX [Suspect]
     Indication: SMOKING CESSATION THERAPY
     Dosage: CHANTIIX STARTING PACK AND 1MG MISCELLANEOUS (SAMPLES)
     Dates: start: 20080730, end: 20080812
  2. INVEGA [Concomitant]
     Indication: DEPRESSION
  3. ZOLOFT [Concomitant]
     Indication: DEPRESSION
     Dosage: UNK
     Dates: start: 20030101
  4. XANAX [Concomitant]
     Indication: DEPRESSION
     Dosage: UNK
     Dates: start: 20060101
  5. INVEGA [Concomitant]
     Indication: SCHIZOAFFECTIVE DISORDER
     Dosage: UNK
     Dates: start: 20060101

REACTIONS (7)
  - SUICIDE ATTEMPT [None]
  - CONDITION AGGRAVATED [None]
  - DEPRESSION [None]
  - PHYSICAL ASSAULT [None]
  - INTENTIONAL OVERDOSE [None]
  - AGGRESSION [None]
  - SUICIDAL IDEATION [None]
